FAERS Safety Report 19932586 (Version 1)
Quarter: 2021Q4

REPORT INFORMATION
  Report Type: Spontaneous
  Country: US (occurrence: US)
  Receive Date: 20211007
  Receipt Date: 20211007
  Transmission Date: 20220303
  Serious: No
  Sender: FDA-Public Use
  Company Number: None

PATIENT
  Age: 30 Year
  Sex: Female
  Weight: 50.85 kg

DRUGS (1)
  1. VYVANSE [Suspect]
     Active Substance: LISDEXAMFETAMINE DIMESYLATE
     Indication: Fatigue
     Route: 048

REACTIONS (4)
  - Weight decreased [None]
  - Hyperphagia [None]
  - Skin discolouration [None]
  - Libido increased [None]

NARRATIVE: CASE EVENT DATE: 20210715
